FAERS Safety Report 11908398 (Version 1)
Quarter: 2016Q1

REPORT INFORMATION
  Report Type: Report from Study
  Country: NL (occurrence: NL)
  Receive Date: 20160111
  Receipt Date: 20160111
  Transmission Date: 20160526
  Serious: Yes (Other)
  Sender: FDA-Public Use
  Company Number: NL-BAXTER-2016BAX000242

PATIENT

DRUGS (1)
  1. ENDOXAN I.V., POEDER VOOR OPLOSSING VOOR INJECTIE 200, 500, 1000 MG [Suspect]
     Active Substance: CYCLOPHOSPHAMIDE
     Indication: PRODUCT USED FOR UNKNOWN INDICATION
     Route: 065

REACTIONS (1)
  - Lung disorder [Recovering/Resolving]
